FAERS Safety Report 26214008 (Version 1)
Quarter: 2025Q4

REPORT INFORMATION
  Report Type: Report from Study
  Country: CA (occurrence: CA)
  Receive Date: 20251230
  Receipt Date: 20251230
  Transmission Date: 20260118
  Serious: Yes (Other)
  Sender: ROCHE
  Company Number: CA-ROCHE-10000466908

PATIENT
  Age: 40 Year
  Sex: Female
  Weight: 70 kg

DRUGS (36)
  1. CELLCEPT [Suspect]
     Active Substance: MYCOPHENOLATE MOFETIL
     Indication: Product used for unknown indication
     Dosage: RECEIVED OUTSIDE OF RPAP
  2. CELLCEPT [Suspect]
     Active Substance: MYCOPHENOLATE MOFETIL
     Dosage: MORE DOSAGE INFO: 1000MG AM AND 500MG PM
  3. GAZYVA [Suspect]
     Active Substance: OBINUTUZUMAB
     Indication: Systemic lupus erythematosus
     Dosage: MORE DOSAGE INFO: 4 DOSES TOTAL
     Route: 042
     Dates: end: 20250711
  4. GAZYVA [Suspect]
     Active Substance: OBINUTUZUMAB
     Indication: Lupus nephritis
     Route: 042
  5. RITUXIMAB [Suspect]
     Active Substance: RITUXIMAB
     Indication: Product used for unknown indication
     Dosage: MORE DOSAGE INFO: RECEIVED OUTSIDE OF RPAP; START DATE IS UNKNOWN
  6. ACETAMINOPHEN [Concomitant]
     Active Substance: ACETAMINOPHEN
  7. ASPIRIN [Concomitant]
     Active Substance: ASPIRIN
  8. ALENDRONATE [Concomitant]
     Active Substance: ALENDRONATE SODIUM
     Route: 048
  9. BENLYSTA [Concomitant]
     Active Substance: BELIMUMAB
  10. BIOTIN [Concomitant]
     Active Substance: BIOTIN
     Route: 048
  11. CALCIUM CARBONATE [Concomitant]
     Active Substance: CALCIUM CARBONATE
     Route: 048
  12. CETIRIZINE [Concomitant]
     Active Substance: CETIRIZINE HYDROCHLORIDE
     Route: 048
  13. COLCHICINE [Concomitant]
     Active Substance: COLCHICINE
     Dosage: FREQUENCY: PRN
  14. LINACLOTIDE [Concomitant]
     Active Substance: LINACLOTIDE
     Dosage: 72 MCG
     Route: 048
  15. FINACEA [Concomitant]
     Active Substance: AZELAIC ACID
  16. FOLIC ACID [Concomitant]
     Active Substance: FOLIC ACID
  17. HYDROXYCHLOROQUINE [Concomitant]
     Active Substance: HYDROXYCHLOROQUINE
  18. LORAZEPAM [Concomitant]
     Active Substance: LORAZEPAM
  19. MAGNESIUM [Concomitant]
     Active Substance: MAGNESIUM
  20. METAMUCIL [Concomitant]
     Active Substance: PLANTAGO SEED
  21. METHOTREXATE [Concomitant]
     Active Substance: METHOTREXATE
  22. OMEPRAZOLE [Concomitant]
     Active Substance: OMEPRAZOLE
  23. ONDANSETRON [Concomitant]
     Active Substance: ONDANSETRON
  24. POLYETHYLENE GLYCOL 3350 [Concomitant]
     Active Substance: POLYETHYLENE GLYCOL 3350
  25. PREDNISONE [Concomitant]
     Active Substance: PREDNISONE
  26. RAMIPRIL [Concomitant]
     Active Substance: RAMIPRIL
  27. SEPTRA DS [Concomitant]
     Active Substance: SULFAMETHOXAZOLE\TRIMETHOPRIM
     Dosage: 800/160 MG QMWF
  28. TACROLIMUS [Concomitant]
     Active Substance: TACROLIMUS
  29. TIRZEPATIDE [Concomitant]
     Active Substance: TIRZEPATIDE
  30. VITAMIN B12 [Concomitant]
     Active Substance: CYANOCOBALAMIN
  31. VITAMIN D3 [Concomitant]
     Active Substance: CHOLECALCIFEROL
  32. PROGESTERONE [Concomitant]
     Active Substance: PROGESTERONE
     Dosage: ONLY PILL
  33. ZOLPIDEM TARTRATE [Concomitant]
     Active Substance: ZOLPIDEM TARTRATE
  34. Asatab EC [Concomitant]
     Dosage: DELAYED RELEASE TABLET
     Route: 048
  35. CAMBIA [Concomitant]
     Active Substance: DICLOFENAC POTASSIUM
     Route: 048
  36. CAMBIA [Concomitant]
     Active Substance: DICLOFENAC POTASSIUM
     Route: 048

REACTIONS (15)
  - Blood albumin decreased [Unknown]
  - Blood creatinine decreased [Unknown]
  - Weight decreased [Unknown]
  - Blood pressure diastolic increased [Unknown]
  - Rash [Unknown]
  - Photosensitivity reaction [Unknown]
  - Mouth ulceration [Unknown]
  - Sicca syndrome [Unknown]
  - Renal disorder [Unknown]
  - Joint swelling [Unknown]
  - Subacute cutaneous lupus erythematosus [Unknown]
  - Chest pain [Unknown]
  - Lymphadenopathy [Unknown]
  - Alopecia [Unknown]
  - Menopause [Unknown]

NARRATIVE: CASE EVENT DATE: 20250101
